FAERS Safety Report 5090520-1 (Version None)
Quarter: 2006Q3

REPORT INFORMATION
  Report Type: 
  Country: None (occurrence: None)
  Receive Date: 20060828
  Receipt Date: 20060523
  Transmission Date: 20061208
  Serious: No
  Sender: FDA-Public Use
  Company Number: US-GLAXOSMITHKLINE-A0606663A

PATIENT
  Age: 72 Year
  Sex: Male

DRUGS (4)
  1. WELLBUTRIN XL [Suspect]
     Indication: DEPRESSION
     Dosage: 300MG PER DAY
     Route: 048
     Dates: start: 20060424
  2. PRAZOSIN HCL [Concomitant]
  3. LISINOPRIL [Concomitant]
  4. PREVACID [Concomitant]

REACTIONS (1)
  - INSOMNIA [None]
